FAERS Safety Report 7280278-X (Version None)
Quarter: 2011Q1

REPORT INFORMATION
  Report Type: 
  Country: None (occurrence: None)
  Receive Date: 20110208
  Receipt Date: 20101130
  Transmission Date: 20110831
  Serious: Yes (Other)
  Sender: FDA-Public Use
  Company Number: US-BAYER-201034776NA

PATIENT
  Sex: Female
  Weight: 125.62 kg

DRUGS (17)
  1. YASMIN [Suspect]
     Indication: MENSTRUAL CYCLE MANAGEMENT
  2. OCELLA [Suspect]
     Indication: POLYCYSTIC OVARIES
     Dosage: UNK
     Dates: start: 20080701, end: 20091101
  3. KLOR-CON [Concomitant]
     Indication: MINERAL SUPPLEMENTATION
     Dosage: 8 MG, UNK
     Dates: start: 20060101, end: 20090101
  4. ALEVE [Concomitant]
     Indication: HEADACHE
  5. ZYRTEC [Concomitant]
     Indication: SINUS DISORDER
  6. HYDROCHLOROTHIAZIDE [Concomitant]
     Indication: DIURETIC THERAPY
  7. NEXIUM [Concomitant]
     Dosage: UNK
     Dates: start: 20070809
  8. YASMIN [Suspect]
     Indication: POLYCYSTIC OVARIES
     Dosage: UNK
     Route: 048
     Dates: start: 20061229, end: 20080601
  9. OCELLA [Suspect]
     Indication: MENSTRUAL CYCLE MANAGEMENT
  10. CLARITIN [Concomitant]
     Indication: SINUS DISORDER
  11. LEVAQUIN [Concomitant]
  12. MODURETIC 5-50 [Concomitant]
     Indication: HYPERTENSION
     Dosage: UNK
     Dates: start: 19950101, end: 20060101
  13. TYLENOL REGULAR [Concomitant]
     Indication: HEADACHE
  14. TYLENOL REGULAR [Concomitant]
     Indication: MUSCLE SPASMS
  15. HYDROCHLOROTHIAZIDE [Concomitant]
     Indication: HYPERTENSION
     Dosage: 50 MG, UNK
     Dates: start: 20040101, end: 20090101
  16. ALEVE [Concomitant]
     Indication: MUSCLE SPASMS
  17. LORTAB [Concomitant]

REACTIONS (2)
  - ABDOMINAL PAIN UPPER [None]
  - CHOLELITHIASIS [None]
